FAERS Safety Report 6771032-3 (Version None)
Quarter: 2010Q2

REPORT INFORMATION
  Report Type: 
  Country: None (occurrence: None)
  Receive Date: 20100616
  Receipt Date: 20100602
  Transmission Date: 20101027
  Serious: Yes (Other)
  Sender: FDA-Public Use
  Company Number: US-RANBAXY-2010US-34262

PATIENT

DRUGS (5)
  1. VALACYCLOVIR HYDROCHLORIDE [Suspect]
     Indication: ANTIVIRAL PROPHYLAXIS
     Dosage: 500 MG, BID (QAM AND QPM)
     Route: 048
     Dates: start: 20100513, end: 20100516
  2. PREMPRO [Concomitant]
     Indication: DRUG USE FOR UNKNOWN INDICATION
     Route: 065
  3. ESTROGEN [Concomitant]
     Indication: DRUG USE FOR UNKNOWN INDICATION
     Route: 065
  4. PROGESTIN INJ [Concomitant]
     Indication: DRUG USE FOR UNKNOWN INDICATION
     Route: 065
  5. BENADRYL [Concomitant]
     Indication: PRURITUS
     Dosage: UNK
     Route: 065
     Dates: start: 20100515, end: 20100516

REACTIONS (19)
  - ADVERSE DRUG REACTION [None]
  - ANXIETY [None]
  - BACK PAIN [None]
  - BALANCE DISORDER [None]
  - COORDINATION ABNORMAL [None]
  - DIARRHOEA [None]
  - DYSARTHRIA [None]
  - DYSKINESIA [None]
  - HALLUCINATION [None]
  - OEDEMA PERIPHERAL [None]
  - ORAL PAIN [None]
  - PYREXIA [None]
  - RASH MACULAR [None]
  - RESTLESS LEGS SYNDROME [None]
  - SKIN DISCOLOURATION [None]
  - SKIN INFECTION [None]
  - URINE COLOUR ABNORMAL [None]
  - URINE ODOUR ABNORMAL [None]
  - VOMITING [None]
